FAERS Safety Report 19084190 (Version 1)
Quarter: 2021Q2

REPORT INFORMATION
  Report Type: Spontaneous
  Country: BA (occurrence: BA)
  Receive Date: 20210401
  Receipt Date: 20210401
  Transmission Date: 20210717
  Serious: Yes (Other)
  Sender: FDA-Public Use
  Company Number: BA-009507513-2103BIH008265

PATIENT
  Age: 65 Year
  Sex: Female

DRUGS (4)
  1. ENALAPRIL [Concomitant]
     Active Substance: ENALAPRIL
     Dosage: 20 MG; 2 X 1 DAILY
     Route: 048
  2. KEYTRUDA [Suspect]
     Active Substance: PEMBROLIZUMAB
     Dosage: UNK
     Dates: start: 2019
  3. VERAPAMIL [Concomitant]
     Active Substance: VERAPAMIL HYDROCHLORIDE
     Dosage: 60 MG; 2 X 1 DAILY
     Route: 048
  4. SIOFOR [Concomitant]
     Active Substance: METFORMIN HYDROCHLORIDE
     Dosage: 500 MG; 3 X 2 DAILY
     Route: 048

REACTIONS (12)
  - Vascular encephalopathy [Unknown]
  - Lymphadenopathy [Unknown]
  - Cerebral arteriosclerosis [Unknown]
  - Cerebral ventricle dilatation [Unknown]
  - Malignant neoplasm progression [Unknown]
  - Cerebral small vessel ischaemic disease [Unknown]
  - Pneumothorax [Unknown]
  - Spinal osteoarthritis [Unknown]
  - Pleural effusion [Unknown]
  - Cerebral atrophy [Unknown]
  - Atelectasis [Unknown]
  - Lung hyperinflation [Unknown]

NARRATIVE: CASE EVENT DATE: 20210316
